FAERS Safety Report 24097727 (Version 1)
Quarter: 2024Q3

REPORT INFORMATION
  Report Type: Report from Study
  Country: IT (occurrence: IT)
  Receive Date: 20240716
  Receipt Date: 20240716
  Transmission Date: 20241016
  Serious: Yes (Other)
  Sender: TEVA
  Company Number: None

PATIENT
  Age: 76 Year
  Sex: Female

DRUGS (2)
  1. PACLITAXEL [Suspect]
     Active Substance: PACLITAXEL
     Indication: Breast cancer
     Dosage: START OF THERAPY 12/15/2023 - WEEKLY THERAPY - 9TH WEEK
     Route: 042
     Dates: start: 20240209, end: 20240209
  2. CARBOPLATIN [Suspect]
     Active Substance: CARBOPLATIN
     Indication: Breast cancer
     Dosage: START OF THERAPY 12/15/2023 - WEEKLY THERAPY - 9TH WEEK
     Route: 042
     Dates: start: 20240209, end: 20240209

REACTIONS (4)
  - Leukopenia [Recovering/Resolving]
  - Mucosal inflammation [Recovering/Resolving]
  - Off label use [Recovering/Resolving]
  - Neutropenia [Recovering/Resolving]

NARRATIVE: CASE EVENT DATE: 20240201
